FAERS Safety Report 8957509 (Version 1)
Quarter: 2012Q4

REPORT INFORMATION
  Report Type: 
  Country: DE (occurrence: DE)
  Receive Date: 20121210
  Receipt Date: 20121210
  Transmission Date: 20130627
  Serious: Yes (Hospitalization)
  Sender: FDA-Public Use
  Company Number: GXKR2012DE003769

PATIENT
  Sex: Female

DRUGS (1)
  1. METOCLOPRAMIDE [Suspect]

REACTIONS (4)
  - Muscle spasms [Unknown]
  - Dysarthria [Unknown]
  - Dysphagia [Unknown]
  - Dyspnoea [Unknown]
